FAERS Safety Report 18462540 (Version 1)
Quarter: 2020Q4

REPORT INFORMATION
  Report Type: Spontaneous
  Country: AU (occurrence: AU)
  Receive Date: 20201104
  Receipt Date: 20201104
  Transmission Date: 20210114
  Serious: Yes (Other)
  Sender: FDA-Public Use
  Company Number: AU-LUPIN PHARMACEUTICALS INC.-2020-06043

PATIENT
  Age: 41 Year
  Sex: Female

DRUGS (5)
  1. ZUCLOPENTHIXOL DECANOATE [Concomitant]
     Active Substance: ZUCLOPENTHIXOL DECANOATE
     Indication: SCHIZOAFFECTIVE DISORDER
     Dosage: 200 MILLIGRAM, FORTNIGHTLY
     Route: 065
  2. LORAZEPAM. [Suspect]
     Active Substance: LORAZEPAM
     Indication: WITHDRAWAL CATATONIA
     Dosage: 8 MILLIGRAM, QD
     Route: 048
  3. VALPROATE [Concomitant]
     Active Substance: VALPROIC ACID
     Indication: SCHIZOAFFECTIVE DISORDER
     Dosage: 1500 MILLIGRAM
  4. DULOXETINE. [Concomitant]
     Active Substance: DULOXETINE
     Indication: SCHIZOAFFECTIVE DISORDER
     Dosage: 90 MILLIGRAM
  5. LORAZEPAM. [Suspect]
     Active Substance: LORAZEPAM
     Indication: MALIGNANT CATATONIA

REACTIONS (1)
  - Drug ineffective [Unknown]
